FAERS Safety Report 16009765 (Version 1)
Quarter: 2019Q1

REPORT INFORMATION
  Report Type: Spontaneous
  Country: FR (occurrence: FR)
  Receive Date: 20190225
  Receipt Date: 20190225
  Transmission Date: 20190418
  Serious: Yes (Other)
  Sender: FDA-Public Use
  Company Number: FR-SA-2019SA046986

PATIENT
  Age: 3 Month
  Sex: Male
  Weight: 3.7 kg

DRUGS (2)
  1. RIFAMPICIN [Suspect]
     Active Substance: RIFAMPIN
     Indication: ANTIBIOTIC PROPHYLAXIS
     Dosage: UNKNOWN
     Route: 003
     Dates: start: 20190121, end: 20190121
  2. PROTAMINE SULFATE. [Suspect]
     Active Substance: PROTAMINE SULFATE
     Indication: HAEMORRHAGE PROPHYLAXIS
     Dosage: 0.7 ML, 1X
     Route: 042
     Dates: start: 20190121, end: 20190121

REACTIONS (5)
  - Oxygen saturation decreased [Recovered/Resolved]
  - Erythema [Recovered/Resolved]
  - Muscle spasticity [Recovered/Resolved]
  - Hypotension [Recovered/Resolved]
  - Pulmonary arterial hypertension [Recovered/Resolved]

NARRATIVE: CASE EVENT DATE: 20190121
